FAERS Safety Report 8622196-8 (Version None)
Quarter: 2012Q3

REPORT INFORMATION
  Report Type: 
  Country: None (occurrence: None)
  Receive Date: 20120827
  Receipt Date: 20120823
  Transmission Date: 20120928
  Serious: Yes (Other)
  Sender: FDA-Public Use
  Company Number: NZ-AMGEN-NZLSP2012038568

PATIENT
  Age: 68 Year
  Sex: Male
  Weight: 123 kg

DRUGS (1)
  1. XGEVA [Suspect]
     Indication: PROSTATE CANCER
     Dosage: 120 MG, Q4WK
     Route: 058
     Dates: start: 20080616, end: 20120524

REACTIONS (2)
  - TONGUE ULCERATION [None]
  - OSTEONECROSIS OF JAW [None]
